FAERS Safety Report 8079432-9 (Version None)
Quarter: 2012Q1

REPORT INFORMATION
  Report Type: 
  Country: None (occurrence: None)
  Receive Date: 20120128
  Receipt Date: 20110825
  Transmission Date: 20120608
  Serious: No
  Sender: FDA-Public Use
  Company Number: US-ABBOTT-11P-163-0849326-00

PATIENT
  Age: 63 Year
  Sex: Male

DRUGS (7)
  1. LANSOPRAZOLE [Concomitant]
     Indication: PRODUCT USED FOR UNKNOWN INDICATION
  2. VIT C [Concomitant]
     Indication: PRODUCT USED FOR UNKNOWN INDICATION
  3. PREDNISOLONE ACET OP [Concomitant]
     Indication: PRODUCT USED FOR UNKNOWN INDICATION
     Dosage: 3 GTTS RIGHT EYE EVERY DAY
  4. HUMIRA [Suspect]
     Indication: PSORIASIS
     Dates: start: 20110803
  5. LUMIGAN [Concomitant]
     Indication: PRODUCT USED FOR UNKNOWN INDICATION
     Dosage: 1 GTT RIGHT EYE EVERY DAY
  6. OINTMENTS [Concomitant]
     Indication: PSORIASIS
  7. MULTI-VITAMIN [Concomitant]
     Indication: PRODUCT USED FOR UNKNOWN INDICATION

REACTIONS (5)
  - RASH PAPULAR [None]
  - LACRIMATION INCREASED [None]
  - PHOTOPHOBIA [None]
  - EYE IRRITATION [None]
  - EYE PAIN [None]
